FAERS Safety Report 5838433-9 (Version None)
Quarter: 2008Q3

REPORT INFORMATION
  Report Type: 
  Country: None (occurrence: None)
  Receive Date: 20080806
  Receipt Date: 20080717
  Transmission Date: 20090109
  Serious: No
  Sender: FDA-Public Use
  Company Number: DAB-2008-00044

PATIENT

DRUGS (3)
  1. PACLITAXEL [Suspect]
     Indication: NON-SMALL CELL LUNG CANCER
     Dosage: 175 MG/M2 INTRAVENOUS
     Route: 042
  2. FLAVOPIRIDOL (FLAVOPIRIDOL) [Suspect]
     Indication: NON-SMALL CELL LUNG CANCER
     Dosage: 85 MG/M2, INTRAVENOUS
     Route: 042
  3. CARBOPLATIN [Suspect]
     Indication: NON-SMALL CELL LUNG CANCER
     Dosage: AUC 5, INTRAVENOUS
     Route: 042

REACTIONS (2)
  - SINUS TACHYCARDIA [None]
  - SUPRAVENTRICULAR EXTRASYSTOLES [None]
